FAERS Safety Report 23149750 (Version 4)
Quarter: 2023Q4

REPORT INFORMATION
  Report Type: Spontaneous
  Country: TW (occurrence: TW)
  Receive Date: 20231106
  Receipt Date: 20231204
  Transmission Date: 20240109
  Serious: Yes (Hospitalization, Other)
  Sender: FDA-Public Use
  Company Number: TW-SANDOZ-SDZ2023TW050485

PATIENT
  Sex: Female
  Weight: 0.675 kg

DRUGS (11)
  1. TACROLIMUS [Suspect]
     Active Substance: TACROLIMUS
     Indication: Foetal exposure during pregnancy
     Dosage: MATERNAL EXPOSURE DURING PREGNANCY: 12 MG/DAY
     Route: 064
  2. TACROLIMUS [Suspect]
     Active Substance: TACROLIMUS
     Dosage: MATERNAL EXPOSURE DURING PREGNANCY: 11 MG/DAY
     Route: 064
  3. TACROLIMUS [Suspect]
     Active Substance: TACROLIMUS
     Dosage: MATERNAL EXPOSURE DURING PREGNANCY: TROUGH LEVEL  3 NG/ML
     Route: 064
  4. EVEROLIMUS [Suspect]
     Active Substance: EVEROLIMUS
     Indication: Foetal exposure during pregnancy
     Dosage: MATERNAL EXPOSURE DURING PREGNANCY: 2.5 MG/DAY
     Route: 064
  5. EVEROLIMUS [Suspect]
     Active Substance: EVEROLIMUS
     Dosage: MATERNAL EXPOSURE DURING PREGNANCY: 1.5 MG/DAY
     Route: 064
  6. EVEROLIMUS [Suspect]
     Active Substance: EVEROLIMUS
     Dosage: MATERNAL EXPOSURE DURING PREGNANCY: TROUGH LEVEL 1.4 NG/ML
     Route: 064
  7. AMLODIPINE [Suspect]
     Active Substance: AMLODIPINE BESYLATE
     Indication: Foetal exposure during pregnancy
     Dosage: MATERNAL EXPOSURE DURING PREGNANCY: 5 MG, QD
     Route: 064
  8. BISOPROLOL [Suspect]
     Active Substance: BISOPROLOL\BISOPROLOL FUMARATE
     Indication: Foetal exposure during pregnancy
     Dosage: MATERNAL EXPOSURE DURING PREGNANCY: 1.25 MG, BID
     Route: 064
  9. INSULIN PORK\INSULIN PURIFIED PORK [Suspect]
     Active Substance: INSULIN PORK\INSULIN PURIFIED PORK
     Indication: Foetal exposure during pregnancy
     Dosage: MATERNAL EXPOSURE DURING PREGNANCY: UNK
     Route: 064
  10. LANSOPRAZOLE [Suspect]
     Active Substance: LANSOPRAZOLE
     Indication: Foetal exposure during pregnancy
     Dosage: MATERNAL EXPOSURE DURING PREGNANCY: UNK
     Route: 064
  11. ASPIRIN [Suspect]
     Active Substance: ASPIRIN
     Indication: Foetal exposure during pregnancy
     Dosage: MATERNAL EXPOSURE DURING PREGNANCY: UNK
     Route: 064

REACTIONS (7)
  - Premature baby [Unknown]
  - Low birth weight baby [Unknown]
  - Foetal growth restriction [Unknown]
  - Foetal hypokinesia [Unknown]
  - Foetal heart rate deceleration abnormality [Unknown]
  - Amniotic fluid index decreased [Unknown]
  - Foetal exposure during pregnancy [Unknown]
